FAERS Safety Report 24599419 (Version 3)
Quarter: 2025Q4

REPORT INFORMATION
  Report Type: Spontaneous
  Country: US (occurrence: US)
  Receive Date: 20241110
  Receipt Date: 20251120
  Transmission Date: 20260118
  Serious: Yes (Death, Other)
  Sender: SANOFI AVENTIS
  Company Number: US-SA-2024SA313188

PATIENT
  Age: 90 Year
  Sex: Male
  Weight: 63.18 kg

DRUGS (26)
  1. DUPIXENT [Suspect]
     Active Substance: DUPILUMAB
     Indication: Dermatitis atopic
     Dosage: 300 MG, Q6W
     Route: 058
     Dates: end: 20251114
  2. DUPIXENT [Suspect]
     Active Substance: DUPILUMAB
     Indication: Pemphigoid
  3. TYLENOL [Concomitant]
     Active Substance: ACETAMINOPHEN
  4. TRESIBA [Concomitant]
     Active Substance: INSULIN DEGLUDEC
  5. PRIVIGEN [Concomitant]
     Active Substance: HUMAN IMMUNOGLOBULIN G
  6. MINERALS\VITAMINS [Concomitant]
     Active Substance: MINERALS\VITAMINS
  7. GLUTOSE [Concomitant]
     Active Substance: DEXTROSE
  8. ELIQUIS [Concomitant]
     Active Substance: APIXABAN
  9. DEXTROSE [Concomitant]
     Active Substance: DEXTROSE MONOHYDRATE
  10. IRON [Concomitant]
     Active Substance: IRON
  11. HUMALOG [Concomitant]
     Active Substance: INSULIN LISPRO
  12. KETOCONAZOLE [Concomitant]
     Active Substance: KETOCONAZOLE
  13. LATANOPROST [Concomitant]
     Active Substance: LATANOPROST
  14. LEVOTHYROXINE\LIOTHYRONINE [Concomitant]
     Active Substance: LEVOTHYROXINE\LIOTHYRONINE
  15. METOPROLOL SUCCINATE [Concomitant]
     Active Substance: METOPROLOL SUCCINATE
  16. VITAMINS [Concomitant]
     Active Substance: VITAMINS
  17. Lactobacillus Complex [Concomitant]
  18. SENNA [Concomitant]
     Active Substance: SENNOSIDES
  19. TAMSULOSIN [Concomitant]
     Active Substance: TAMSULOSIN
  20. TOLNAFTATE [Concomitant]
     Active Substance: TOLNAFTATE
  21. TORSEMIDE [Concomitant]
     Active Substance: TORSEMIDE
  22. FLUTICASONE PROPIONATE [Concomitant]
     Active Substance: FLUTICASONE PROPIONATE
  23. BAQSIMI [Concomitant]
     Active Substance: GLUCAGON
  24. CREON [Concomitant]
     Active Substance: PANCRELIPASE AMYLASE\PANCRELIPASE LIPASE\PANCRELIPASE PROTEASE
  25. PRAVASTATIN SODIUM [Concomitant]
     Active Substance: PRAVASTATIN SODIUM
  26. LEVOTHYROXINE SODIUM [Concomitant]
     Active Substance: LEVOTHYROXINE SODIUM

REACTIONS (3)
  - Death [Fatal]
  - Dizziness [Unknown]
  - Inappropriate schedule of product administration [Unknown]

NARRATIVE: CASE EVENT DATE: 20251114
